FAERS Safety Report 23235351 (Version 1)
Quarter: 2023Q4

REPORT INFORMATION
  Report Type: Spontaneous
  Country: DE (occurrence: DE)
  Receive Date: 20231128
  Receipt Date: 20231128
  Transmission Date: 20240110
  Serious: Yes (Hospitalization, Other)
  Sender: FDA-Public Use
  Company Number: DE-PFIZER INC-PV202300190692

PATIENT
  Age: 65 Year
  Sex: Male

DRUGS (4)
  1. METHOTREXATE SODIUM [Suspect]
     Active Substance: METHOTREXATE SODIUM
     Dosage: 15 MG, WEEKLY
     Route: 058
     Dates: start: 2019
  2. TORSEMIDE [Concomitant]
     Active Substance: TORSEMIDE
     Indication: Hypertension
     Dosage: 20 MG
  3. TORSEMIDE [Concomitant]
     Active Substance: TORSEMIDE
     Indication: Cardiac failure chronic
     Dosage: 40 MG
  4. TORSEMIDE [Concomitant]
     Active Substance: TORSEMIDE
     Indication: Renal failure

REACTIONS (8)
  - Upper respiratory tract infection [Unknown]
  - Leukopenia [Unknown]
  - Nephropathy toxic [Unknown]
  - Oedema peripheral [Unknown]
  - Stomatitis [Unknown]
  - Blood creatinine increased [Unknown]
  - Glomerular filtration rate decreased [Unknown]
  - Off label use [Unknown]
